FAERS Safety Report 4535228-3 (Version None)
Quarter: 2004Q4

REPORT INFORMATION
  Report Type: 
  Country: None (occurrence: None)
  Receive Date: 20041214
  Receipt Date: 20040823
  Transmission Date: 20050328
  Serious: Yes (Other)
  Sender: FDA-Public Use
  Company Number: 2004225272US

PATIENT
  Age: 85 Year
  Sex: Female
  Weight: 90.7 kg

DRUGS (10)
  1. BEXTRA [Suspect]
     Indication: ARTHRITIS
     Dosage: 10 MG, BID, ORAL
     Route: 048
     Dates: start: 20040723, end: 20040725
  2. ALTACE [Concomitant]
  3. NORVASC [Concomitant]
  4. METOPROLOL [Concomitant]
  5. FUROSEMIDE [Concomitant]
  6. PRAVACHOL [Concomitant]
  7. ECOTRIN [Concomitant]
  8. PERCOCET  (OXYCODONE HYDROCHLORIDE, OXYCODONE TEREPHTHALATE) [Concomitant]
  9. MULTIVITAMIN [Concomitant]
  10. IRON [Concomitant]

REACTIONS (1)
  - DYSPNOEA [None]
